FAERS Safety Report 14526201 (Version 1)
Quarter: 2018Q1

REPORT INFORMATION
  Report Type: Spontaneous
  Country: US (occurrence: US)
  Receive Date: 20180212
  Receipt Date: 20180212
  Transmission Date: 20180509
  Serious: No
  Sender: FDA-Public Use
  Company Number: None

PATIENT
  Age: 38 Year
  Sex: Female

DRUGS (1)
  1. SIMPONI [Suspect]
     Active Substance: GOLIMUMAB

REACTIONS (5)
  - Ear congestion [None]
  - Drug hypersensitivity [None]
  - Pharyngeal oedema [None]
  - Glossitis [None]
  - Muscle tightness [None]

NARRATIVE: CASE EVENT DATE: 20180212
